FAERS Safety Report 16723675 (Version 2)
Quarter: 2019Q3

REPORT INFORMATION
  Report Type: Spontaneous
  Country: US (occurrence: US)
  Receive Date: 20190821
  Receipt Date: 20190830
  Transmission Date: 20191005
  Serious: Yes (Other)
  Sender: FDA-Public Use
  Company Number: US-GW PHARMA-201908USGW2857

PATIENT

DRUGS (5)
  1. EPIDIOLEX [Suspect]
     Active Substance: CANNABIDIOL
     Indication: LENNOX-GASTAUT SYNDROME
     Dosage: UNK, DOSE INCREASED
     Route: 048
  2. PRIMIDONE. [Suspect]
     Active Substance: PRIMIDONE
     Indication: PRODUCT USED FOR UNKNOWN INDICATION
     Dosage: UNK, INITIAL DOSE
     Route: 065
  3. EPIDIOLEX [Suspect]
     Active Substance: CANNABIDIOL
     Indication: EPILEPSY
     Dosage: 14.69MG/KG, 250 MILLIGRAM, BID
     Route: 048
     Dates: start: 201810
  4. PRIMIDONE. [Suspect]
     Active Substance: PRIMIDONE
     Dosage: UNK (DOSE DECREASED)
     Route: 065
  5. PRIMIDONE. [Suspect]
     Active Substance: PRIMIDONE
     Dosage: UNK, DOSE INCREASED
     Route: 065

REACTIONS (1)
  - Seizure [Unknown]
